FAERS Safety Report 6093018-7 (Version None)
Quarter: 2009Q1

REPORT INFORMATION
  Report Type: 
  Country: None (occurrence: None)
  Receive Date: 20090224
  Receipt Date: 20090210
  Transmission Date: 20090719
  Serious: Yes (Hospitalization)
  Sender: FDA-Public Use
  Company Number: 235858J08USA

PATIENT
  Age: 30 Year
  Sex: Female
  Weight: 52 kg

DRUGS (1)
  1. REBIF [Suspect]
     Indication: MULTIPLE SCLEROSIS
     Dosage: 44 MCG, 3 IN 1 WEEKS, SUBCUTANEOUS
     Route: 058
     Dates: start: 20070501, end: 20080801

REACTIONS (8)
  - ANAEMIA [None]
  - BLOOD POTASSIUM DECREASED [None]
  - DEPRESSION [None]
  - DISEASE PROGRESSION [None]
  - HEADACHE [None]
  - MULTIPLE SCLEROSIS [None]
  - PYELONEPHRITIS [None]
  - VENA CAVA THROMBOSIS [None]
